FAERS Safety Report 22810458 (Version 4)
Quarter: 2023Q4

REPORT INFORMATION
  Report Type: Report from Study
  Country: MY (occurrence: MY)
  Receive Date: 20230810
  Receipt Date: 20231128
  Transmission Date: 20240110
  Serious: Yes (Death, Hospitalization)
  Sender: FDA-Public Use
  Company Number: MY-GILEAD-2023-0639269

PATIENT
  Age: 57 Year
  Sex: Male
  Weight: 85.5 kg

DRUGS (26)
  1. SACITUZUMAB GOVITECAN-HZIY [Suspect]
     Active Substance: SACITUZUMAB GOVITECAN-HZIY
     Indication: Non-small cell lung cancer
     Dosage: 860 MG
     Route: 042
     Dates: start: 20230725, end: 20230725
  2. SACITUZUMAB GOVITECAN-HZIY [Suspect]
     Active Substance: SACITUZUMAB GOVITECAN-HZIY
     Dosage: 860 MG
     Route: 042
     Dates: start: 20230801, end: 20230801
  3. PEMBROLIZUMAB [Suspect]
     Active Substance: PEMBROLIZUMAB
     Indication: Non-small cell lung cancer
     Dosage: 200 MG
     Route: 042
     Dates: start: 20230725, end: 20230725
  4. TENOFOVIR DISOPROXIL FUMARATE [Concomitant]
     Active Substance: TENOFOVIR DISOPROXIL FUMARATE
     Indication: Hepatitis B core antibody positive
     Route: 048
     Dates: start: 20230724
  5. ATORVASTATIN [Concomitant]
     Active Substance: ATORVASTATIN
     Indication: Dyslipidaemia
     Route: 048
  6. METFORMIN [Concomitant]
     Active Substance: METFORMIN HYDROCHLORIDE
     Indication: Diabetes mellitus
     Route: 048
  7. METFORMIN [Concomitant]
     Active Substance: METFORMIN HYDROCHLORIDE
     Indication: Diabetes mellitus
     Route: 048
  8. METFORMIN [Concomitant]
     Active Substance: METFORMIN HYDROCHLORIDE
     Route: 048
  9. METFORMIN [Concomitant]
     Active Substance: METFORMIN HYDROCHLORIDE
     Route: 048
  10. METFORMIN [Concomitant]
     Active Substance: METFORMIN HYDROCHLORIDE
     Route: 048
  11. VILDAGLIPTIN [Concomitant]
     Active Substance: VILDAGLIPTIN
     Indication: Diabetes mellitus
     Route: 048
  12. VILDAGLIPTIN [Concomitant]
     Active Substance: VILDAGLIPTIN
     Indication: Diabetes mellitus
     Route: 048
  13. VILDAGLIPTIN [Concomitant]
     Active Substance: VILDAGLIPTIN
     Route: 048
  14. VILDAGLIPTIN [Concomitant]
     Active Substance: VILDAGLIPTIN
     Route: 048
  15. VILDAGLIPTIN [Concomitant]
     Active Substance: VILDAGLIPTIN
     Route: 048
  16. MORPHINE [Concomitant]
     Active Substance: MORPHINE
     Indication: Chest pain
     Route: 048
     Dates: start: 20230623
  17. MAGNESIUM OXIDE [Concomitant]
     Active Substance: MAGNESIUM OXIDE
     Indication: Hypomagnesaemia
     Route: 048
     Dates: start: 20230724, end: 20230731
  18. MAGNESIUM OXIDE [Concomitant]
     Active Substance: MAGNESIUM OXIDE
     Indication: Hypomagnesaemia
  19. APREPITANT [Concomitant]
     Active Substance: APREPITANT
     Indication: Nausea
     Route: 048
     Dates: start: 20230801
  20. APREPITANT [Concomitant]
     Active Substance: APREPITANT
     Indication: Vomiting
     Dosage: UNK
     Route: 048
     Dates: start: 20230801
  21. LOPERAMIDE [Concomitant]
     Active Substance: LOPERAMIDE
     Indication: Diarrhoea
     Route: 048
     Dates: start: 20230801
  22. LORATADINE [Concomitant]
     Active Substance: LORATADINE
     Indication: Pruritus
     Route: 048
     Dates: start: 20230801
  23. METOCLOPRAMIDE [Concomitant]
     Active Substance: METOCLOPRAMIDE
     Indication: Vomiting
     Dosage: UNK
     Route: 048
     Dates: start: 20230801
  24. METOCLOPRAMIDE [Concomitant]
     Active Substance: METOCLOPRAMIDE
     Indication: Nausea
     Dosage: UNK
     Route: 048
     Dates: start: 20230801
  25. CHLORPHENIRAMINE MALEATE [Concomitant]
     Active Substance: CHLORPHENIRAMINE MALEATE
     Indication: Pruritus
     Route: 048
     Dates: start: 20230801
  26. PEGFILGRASTIM [Concomitant]
     Active Substance: PEGFILGRASTIM
     Indication: Prophylaxis
     Route: 058
     Dates: start: 20230802, end: 20230802

REACTIONS (1)
  - Neutropenic sepsis [Fatal]

NARRATIVE: CASE EVENT DATE: 20230806
